FAERS Safety Report 8150704-2 (Version None)
Quarter: 2012Q1

REPORT INFORMATION
  Report Type: 
  Country: None (occurrence: None)
  Receive Date: 20120220
  Receipt Date: 20120217
  Transmission Date: 20120608
  Serious: Yes (Other)
  Sender: FDA-Public Use
  Company Number: PHFR2012IE001045

PATIENT
  Sex: Female

DRUGS (4)
  1. CALCIUM CARBONATE [Concomitant]
     Indication: OSTEOPOROSIS
     Dosage: 1250/400 IU BID
  2. THIAMINE HCL [Concomitant]
     Dosage: 100 MG,
     Route: 048
  3. VENLAFAXINE [Concomitant]
     Indication: DEPRESSED MOOD
     Dosage: 225 MG, QD
  4. CLOZARIL [Suspect]
     Dosage: 200 MG, BID
     Route: 048
     Dates: start: 20031201

REACTIONS (2)
  - LOCALISED INFECTION [None]
  - CELLULITIS [None]
